FAERS Safety Report 8601686 (Version 5)
Quarter: 2013Q1

REPORT INFORMATION
  Report Type: Report from Study
  Country: US (occurrence: US)
  Receive Date: 20120606
  Receipt Date: 20130322
  Transmission Date: 20140127
  Serious: Yes (Death, Hospitalization, Other)
  Sender: FDA-Public Use
  Company Number: US-ACTELION-A-US2012-66628

PATIENT
  Age: 64 Year
  Sex: Male

DRUGS (4)
  1. TRACLEER [Suspect]
     Indication: PULMONARY ARTERIAL HYPERTENSION
     Dosage: 125
     Route: 048
     Dates: start: 2008, end: 20130208
  2. SILDENAFIL [Concomitant]
  3. REMODULIN [Concomitant]
  4. PLAVIX [Concomitant]

REACTIONS (5)
  - Lung neoplasm malignant [Fatal]
  - Bladder cancer [Fatal]
  - Dyspnoea [Fatal]
  - Gastrointestinal haemorrhage [Recovering/Resolving]
  - Radiotherapy [Fatal]
